FAERS Safety Report 17572787 (Version 2)
Quarter: 2020Q1

REPORT INFORMATION
  Report Type: Report from Study
  Country: None (occurrence: US)
  Receive Date: 20200323
  Receipt Date: 20200326
  Transmission Date: 20200409
  Serious: Yes (Other)
  Sender: FDA-Public Use
  Company Number: US-ABBVIE-19K-163-3198715-00

PATIENT
  Age: 27 Year
  Sex: Female
  Weight: 86.26 kg

DRUGS (5)
  1. HUMIRA [Suspect]
     Active Substance: ADALIMUMAB
     Indication: CROHN^S DISEASE
     Dosage: CITRATE FREE
     Route: 058
     Dates: start: 20191216
  2. HUMIRA [Suspect]
     Active Substance: ADALIMUMAB
     Indication: PSORIASIS
     Route: 058
  3. HUMIRA [Suspect]
     Active Substance: ADALIMUMAB
     Route: 058
  4. LIDOCAINE. [Concomitant]
     Active Substance: LIDOCAINE
     Indication: PRODUCT USED FOR UNKNOWN INDICATION
  5. BARBITAL [Concomitant]
     Active Substance: BARBITAL
     Indication: PRODUCT USED FOR UNKNOWN INDICATION

REACTIONS (15)
  - Haemorrhage [Not Recovered/Not Resolved]
  - Hyperthyroidism [Unknown]
  - Hyperhidrosis [Not Recovered/Not Resolved]
  - Paraesthesia [Unknown]
  - Skin irritation [Not Recovered/Not Resolved]
  - Nausea [Not Recovered/Not Resolved]
  - Psoriasis [Not Recovered/Not Resolved]
  - Pruritus [Not Recovered/Not Resolved]
  - Pain [Not Recovered/Not Resolved]
  - Abdominal discomfort [Unknown]
  - Carpal tunnel syndrome [Unknown]
  - Lymphoma [Unknown]
  - Skin plaque [Not Recovered/Not Resolved]
  - Hypoaesthesia [Unknown]
  - Breast tenderness [Not Recovered/Not Resolved]

NARRATIVE: CASE EVENT DATE: 201912
